FAERS Safety Report 8451163-2 (Version None)
Quarter: 2012Q2

REPORT INFORMATION
  Report Type: 
  Country: None (occurrence: None)
  Receive Date: 20120620
  Receipt Date: 20120611
  Transmission Date: 20120825
  Serious: Yes (Hospitalization, Other)
  Sender: FDA-Public Use
  Company Number: JP-ASTRAZENECA-2012SE37090

PATIENT
  Age: 11063 Day
  Sex: Male
  Weight: 116 kg

DRUGS (5)
  1. SYMBICORT [Suspect]
     Indication: ASTHMA
     Dosage: 1 DF TWO TIMES A DAY
     Route: 055
     Dates: end: 20120528
  2. COUGHNOL L [Concomitant]
     Indication: ASTHMA
     Route: 048
     Dates: end: 20120528
  3. MONTELUKAST SODIUM [Concomitant]
     Indication: ASTHMA
     Route: 048
     Dates: end: 20120528
  4. CETIRIZINE HYDROCHLORIDE [Concomitant]
     Indication: ASTHMA
     Route: 048
     Dates: end: 20120528
  5. HUSTAZOL [Concomitant]
     Indication: ASTHMA
     Route: 048
     Dates: end: 20120528

REACTIONS (2)
  - PARALYSIS [None]
  - BLOOD POTASSIUM DECREASED [None]
